FAERS Safety Report 7366922-7 (Version None)
Quarter: 2011Q1

REPORT INFORMATION
  Report Type: 
  Country: None (occurrence: None)
  Receive Date: 20110322
  Receipt Date: 20110311
  Transmission Date: 20110831
  Serious: Yes (Hospitalization)
  Sender: FDA-Public Use
  Company Number: B0705707A

PATIENT
  Sex: Male
  Weight: 77 kg

DRUGS (14)
  1. RIFADIN [Concomitant]
     Dosage: 1500MG PER DAY
     Route: 048
     Dates: start: 20101210, end: 20101217
  2. EUPANTOL [Concomitant]
     Dosage: 20MG PER DAY
     Route: 048
  3. DUPHALAC [Concomitant]
     Dosage: 1UNIT TWICE PER DAY
     Route: 048
     Dates: start: 20101123
  4. ARIXTRA [Suspect]
     Indication: DEEP VEIN THROMBOSIS
     Dosage: 7.5MG PER DAY
     Route: 058
     Dates: start: 20101210
  5. NEXIUM [Concomitant]
     Dosage: 40MG PER DAY
     Route: 048
     Dates: start: 20101231
  6. SPECIAFOLDINE [Concomitant]
     Dosage: 5MG TWICE PER DAY
     Route: 048
     Dates: start: 20101210
  7. JANUMET [Concomitant]
     Dosage: 1TAB TWICE PER DAY
     Route: 048
     Dates: start: 20110106
  8. TAVANIC [Concomitant]
     Dosage: 250MG THREE TIMES PER DAY
     Route: 048
     Dates: start: 20101210, end: 20101217
  9. ATARAX [Concomitant]
     Dosage: 50MG PER DAY
     Route: 048
  10. IMOVANE [Concomitant]
     Indication: INSOMNIA
     Dosage: 7.5MG PER DAY
     Route: 048
     Dates: start: 20101231
  11. PARACETAMOL [Concomitant]
     Dosage: 1G AS REQUIRED
     Route: 048
     Dates: start: 20101210
  12. ENALAPRIL MALEATE [Concomitant]
     Dosage: 20MG PER DAY
     Route: 048
     Dates: start: 20101210
  13. LANTUS [Concomitant]
     Dosage: 12IU PER DAY
     Route: 058
     Dates: start: 20101210
  14. NORSET [Concomitant]
     Dosage: 15MG PER DAY
     Route: 048
     Dates: start: 20101210

REACTIONS (5)
  - EPISTAXIS [None]
  - LOCALISED OEDEMA [None]
  - TRAUMATIC HAEMATOMA [None]
  - ANAEMIA [None]
  - MUSCULOSKELETAL PAIN [None]
